FAERS Safety Report 9285147 (Version 1)
Quarter: 2013Q2

REPORT INFORMATION
  Report Type: Spontaneous
  Country: GB (occurrence: None)
  Receive Date: 20130507
  Receipt Date: 20130507
  Transmission Date: 20140414
  Serious: Yes (Other)
  Sender: FDA-Public Use
  Company Number: 13-1200

PATIENT
  Age: 71 Year
  Sex: Female

DRUGS (3)
  1. CLOSTRIDIUM BOTULINUM [Suspect]
     Indication: PRODUCT USED FOR UNKNOWN INDICATION
     Dosage: 1 IN 1 TOTAL
     Dates: start: 201106, end: 201106
  2. CLARITHROMYCIN [Concomitant]
  3. STEROIDS (CORTICOSTEROIDS) [Concomitant]

REACTIONS (3)
  - Cardiac failure [None]
  - Dyspnoea [None]
  - Cardiomegaly [None]
